FAERS Safety Report 21011117 (Version 5)
Quarter: 2023Q1

REPORT INFORMATION
  Report Type: Spontaneous
  Country: GB (occurrence: GB)
  Receive Date: 20220627
  Receipt Date: 20230109
  Transmission Date: 20230417
  Serious: Yes (Hospitalization, Other)
  Sender: FDA-Public Use
  Company Number: GB-CELGENE-GBR-2016126775

PATIENT
  Age: 70 Year
  Sex: Male
  Weight: 90 kg

DRUGS (22)
  1. DICLOFENAC [Suspect]
     Active Substance: DICLOFENAC
     Indication: Plasma cell myeloma
     Dosage: 40 MG, WE (1 TIME EVERY 1 WEEK)
     Route: 048
     Dates: start: 20161130
  2. DICLOFENAC [Suspect]
     Active Substance: DICLOFENAC
     Dosage: 6 MILLIGRAM
     Route: 048
  3. DICLOFENAC [Suspect]
     Active Substance: DICLOFENAC
     Dosage: 60 MILLIGRAM
     Route: 048
  4. REVLIMID [Suspect]
     Active Substance: LENALIDOMIDE
     Indication: Plasma cell myeloma
     Dosage: 525 MILLIGRAM, 28D CYCLE
     Route: 048
     Dates: start: 20161130
  5. REVLIMID [Suspect]
     Active Substance: LENALIDOMIDE
     Dosage: 25 MILLIGRAM, 28D CYCLE
     Route: 048
     Dates: start: 20161130, end: 20161219
  6. REVLIMID [Suspect]
     Active Substance: LENALIDOMIDE
     Dosage: 19 MILLIGRAM
     Route: 048
     Dates: start: 20161214, end: 20161214
  7. REVLIMID [Suspect]
     Active Substance: LENALIDOMIDE
     Dosage: 25 MILLIGRAM, Q28D (25 MG)
     Route: 048
     Dates: start: 20161130, end: 20161219
  8. DARATUMUMAB [Suspect]
     Active Substance: DARATUMUMAB
     Indication: Plasma cell myeloma
     Dosage: 1480 MILLIGRAM, QW
     Route: 042
     Dates: start: 20161130, end: 20161214
  9. DEXAMETHASONE [Suspect]
     Active Substance: DEXAMETHASONE
     Indication: Plasma cell myeloma
     Dosage: 40 MILLIGRAM, QW (40 MG)
     Route: 042
     Dates: start: 20161130, end: 20161214
  10. ENSURE [Concomitant]
     Active Substance: AMINO ACIDS\DEXTROSE\ELECTROLYTES NOS\SOYBEAN OIL\VITAMINS
     Indication: Decreased appetite
     Dosage: UNK (START DATE:30-DEC-2016)
     Route: 065
  11. CIPROFLOXACIN [Concomitant]
     Active Substance: CIPROFLOXACIN
     Indication: Product used for unknown indication
     Dosage: 500 MILLIGRAM, QD (1000 MILLIGRAM) START DATE: 16-MAR-2017
     Route: 065
     Dates: end: 20170606
  12. TAMSULOSIN [Concomitant]
     Active Substance: TAMSULOSIN
     Indication: Urinary retention
     Dosage: 400 MICROGRAM, QD (START DATE: 13-MAR-2017)
     Route: 065
  13. OMEPRAZOLE [Concomitant]
     Active Substance: OMEPRAZOLE
     Indication: Plasma cell myeloma
     Dosage: 20 MILLIGRAM
     Route: 065
     Dates: start: 20161130
  14. AMOXICILLIN [Concomitant]
     Active Substance: AMOXICILLIN
     Indication: Product used for unknown indication
     Dosage: 1 GRAM, QD (3 GRAM) (START DATE: 12-MAR-2017)
     Route: 065
     Dates: end: 20180316
  15. GENTAMICIN [Concomitant]
     Active Substance: GENTAMICIN
     Indication: Product used for unknown indication
     Dosage: 560 MILLIGRAM, QD (START DATE: 12-MAR-2017)
     Route: 065
     Dates: end: 20180515
  16. HYDROCORTISONE [Concomitant]
     Active Substance: HYDROCORTISONE
     Indication: Flushing
     Dosage: 100 MILLIGRAM (START DATE: 09-MAR-2017)
     Route: 065
     Dates: end: 20170309
  17. METRONIDAZOLE [Concomitant]
     Active Substance: METRONIDAZOLE
     Indication: Product used for unknown indication
     Dosage: 500MG, QD (1500MG) (START DATE: 12-MAR-2017)
     Route: 065
     Dates: end: 20180315
  18. ALLOPURINOL [Concomitant]
     Active Substance: ALLOPURINOL
     Indication: Chemotherapy
     Dosage: 300 MILLIGRAM, QD
     Route: 048
     Dates: start: 20161130
  19. AMOXICILLIN\CLAVULANATE POTASSIUM [Concomitant]
     Active Substance: AMOXICILLIN\CLAVULANATE POTASSIUM
     Indication: Prophylaxis
     Dosage: 625 MILLIGRAM, QD (1875 MILLIGRAM), START DATE: 16-MAR-2017
     Route: 065
     Dates: end: 20171202
  20. ZOMETA [Concomitant]
     Active Substance: ZOLEDRONIC ACID
     Indication: Product used for unknown indication
     Dosage: UNK, START DATE: 13-JAN-2017
     Route: 065
  21. PIPERACILLIN SODIUM\TAZOBACTAM SODIUM [Concomitant]
     Active Substance: PIPERACILLIN SODIUM\TAZOBACTAM SODIUM
     Indication: Pyrexia
     Dosage: 4.5 GRAM, START DATE: 12-MAR-2017
     Route: 065
     Dates: end: 20180312
  22. CHLORPHENIRAMINE MALEATE [Concomitant]
     Active Substance: CHLORPHENIRAMINE MALEATE
     Indication: Flushing
     Dosage: 10 MILLIGRAM, START DATE: 09-MAR-2017
     Route: 065
     Dates: end: 20170309

REACTIONS (6)
  - Back pain [Recovering/Resolving]
  - Hypoaesthesia [Not Recovered/Not Resolved]
  - Diverticular perforation [Recovered/Resolved]
  - Pulmonary embolism [Recovered/Resolved]
  - Intentional product use issue [Unknown]
  - Off label use [Unknown]

NARRATIVE: CASE EVENT DATE: 20161130
